FAERS Safety Report 9282090 (Version 1)
Quarter: 2013Q2

REPORT INFORMATION
  Report Type: Spontaneous
  Country: BR (occurrence: BR)
  Receive Date: 20130510
  Receipt Date: 20130510
  Transmission Date: 20140414
  Serious: Yes (Other)
  Sender: FDA-Public Use
  Company Number: BR-AMGEN-BRASP2013032629

PATIENT
  Age: 63 Year
  Sex: Female
  Weight: 77 kg

DRUGS (3)
  1. ENBREL [Suspect]
     Indication: RHEUMATOID ARTHRITIS
     Dosage: 50 MG, WEEKLY
     Dates: start: 201212
  2. METFORMIN [Concomitant]
     Indication: DIABETES MELLITUS
     Dosage: UNK
  3. LOSARTAN [Concomitant]
     Indication: HYPERTENSION
     Dosage: 50 MG, UNK

REACTIONS (2)
  - Thrombosis [Unknown]
  - Accident [Unknown]
